FAERS Safety Report 22873851 (Version 3)
Quarter: 2024Q3

REPORT INFORMATION
  Report Type: Spontaneous
  Country: JP (occurrence: JP)
  Receive Date: 20230828
  Receipt Date: 20240705
  Transmission Date: 20241017
  Serious: Yes (Death, Life-Threatening, Hospitalization, Other)
  Sender: JAZZ
  Company Number: JP-JAZZ PHARMACEUTICALS-2023-JP-018120

PATIENT
  Age: 52 Year
  Sex: Male
  Weight: 49.2 kg

DRUGS (1)
  1. DEFITELIO [Suspect]
     Active Substance: DEFIBROTIDE SODIUM
     Indication: Venoocclusive liver disease
     Dosage: 25 MILLIGRAM/KILOGRAM, QD
     Route: 042
     Dates: start: 20230613, end: 20230623

REACTIONS (6)
  - Venoocclusive liver disease [Fatal]
  - Candida infection [Fatal]
  - Bacteraemia [Fatal]
  - Hypotension [Not Recovered/Not Resolved]
  - Hypotension [Recovering/Resolving]
  - Gastrointestinal haemorrhage [Recovering/Resolving]

NARRATIVE: CASE EVENT DATE: 20230101
